FAERS Safety Report 18915837 (Version 1)
Quarter: 2021Q1

REPORT INFORMATION
  Report Type: Report from Study
  Country: US (occurrence: US)
  Receive Date: 20210219
  Receipt Date: 20210219
  Transmission Date: 20210420
  Serious: Yes (Hospitalization)
  Sender: FDA-Public Use
  Company Number: US-TEVA-2021-US-1881361

PATIENT
  Age: 64 Year
  Sex: Female
  Weight: 69.3 kg

DRUGS (39)
  1. CIPROFLOXACIN. [Concomitant]
     Active Substance: CIPROFLOXACIN
     Indication: URINARY TRACT INFECTION
     Dosage: 500 MG (250 MG,2 IN 1 D)
     Route: 048
     Dates: start: 20160229, end: 20160302
  2. DILAUDID [Concomitant]
     Active Substance: HYDROMORPHONE HYDROCHLORIDE
     Dosage: (1 MG,AS REQUIRED)
     Dates: start: 20160302, end: 20160302
  3. B6 [Concomitant]
     Active Substance: PYRIDOXINE HYDROCHLORIDE
     Indication: NEUROPATHY PERIPHERAL
     Dosage: (50 MG,2 IN 1 D)
     Route: 048
     Dates: start: 20160518
  4. PACLITAXEL. [Suspect]
     Active Substance: PACLITAXEL
     Indication: TRIPLE NEGATIVE BREAST CANCER
     Dosage: 12 WEEKLY CYCLES (80 MG/M2,1 IN 1 WK)
     Route: 042
     Dates: start: 20160204, end: 20160420
  5. CIPROFLOXACIN. [Concomitant]
     Active Substance: CIPROFLOXACIN
     Dosage: 500 MG (250 MG,2 IN 1 D)
     Route: 048
     Dates: start: 20160421, end: 20160426
  6. CEFEPIME [Concomitant]
     Active Substance: CEFEPIME HYDROCHLORIDE
     Indication: URINARY TRACT INFECTION
     Dosage: 4 GM (2 GM,2 IN 1 D)
     Route: 042
     Dates: start: 20160302, end: 20160306
  7. TORADOL [Concomitant]
     Active Substance: KETOROLAC TROMETHAMINE
     Indication: PAIN
     Dosage: (15 MG,AS REQUIRED)
     Dates: start: 20160305, end: 20160306
  8. DOXORUBICIN [Suspect]
     Active Substance: DOXORUBICIN
     Indication: TRIPLE NEGATIVE BREAST CANCER
     Dosage: DOSE: (60 MG/M2,1 IN 2 WK)
     Route: 042
     Dates: start: 20160608
  9. CARBOPLATIN. [Suspect]
     Active Substance: CARBOPLATIN
     Indication: TRIPLE NEGATIVE BREAST CANCER
     Dosage: AUC 6; ON DAY 1 OF 4 CYCLES (1 IN 21 D)
     Route: 042
     Dates: start: 20160204
  10. DEXAMETHASONE. [Concomitant]
     Active Substance: DEXAMETHASONE
     Dosage: PRIOR TO CHEMOTHERAPY (10 MG)
     Route: 042
     Dates: start: 20160608, end: 20160720
  11. AMPICILLIN [Concomitant]
     Active Substance: AMPICILLIN
     Indication: PROPHYLAXIS
     Dosage: 8 GM (2 GM,4 IN 1 D)
     Route: 042
     Dates: start: 20160302, end: 20160306
  12. MACROGOL [Concomitant]
     Active Substance: POLYETHYLENE GLYCOLS
     Indication: CONSTIPATION
     Dosage: 17 GM (17 GM,1 IN 1 D)
     Route: 048
     Dates: start: 20160307
  13. DULCOLAX NOS [Concomitant]
     Active Substance: BISACODYL OR DOCUSATE SODIUM
     Indication: CONSTIPATION
     Dosage: (5 MG,ONCE)
     Route: 048
     Dates: start: 20160309, end: 20160309
  14. PYRIDIUM [Concomitant]
     Active Substance: PHENAZOPYRIDINE
     Indication: DYSURIA
     Dosage: 300 MG (100 MG,3 IN 1 D)
     Route: 048
     Dates: start: 20160308, end: 20160310
  15. POTASSIUM CHLORIDE. [Concomitant]
     Active Substance: POTASSIUM CHLORIDE
     Indication: PROPHYLAXIS
  16. PEGFILGRASTIM [Concomitant]
     Active Substance: PEGFILGRASTIM
     Indication: PROPHYLAXIS
     Dosage: (6 MG,1 IN 2 WK)
     Route: 058
     Dates: start: 20160608
  17. PACLITAXEL. [Suspect]
     Active Substance: PACLITAXEL
     Route: 042
     Dates: start: 20160511
  18. CYCLOPHOSPHAMIDE. [Suspect]
     Active Substance: CYCLOPHOSPHAMIDE
     Indication: TRIPLE NEGATIVE BREAST CANCER
     Dosage: (600 MG/M2,1 IN 2 WK)
     Route: 042
     Dates: start: 20160608
  19. DILAUDID [Concomitant]
     Active Substance: HYDROMORPHONE HYDROCHLORIDE
     Indication: PAIN
     Dosage: (1 MG,AS REQUIRED)
     Route: 040
     Dates: start: 20160302
  20. SENNA?DOCUSATE [Concomitant]
     Active Substance: DOCUSATE SODIUM\SENNOSIDES
     Indication: CONSTIPATION
     Dosage: 8.6?50 MG (MILLIGRAM(S)) (2 IN 1 D)
     Route: 048
     Dates: start: 20160307
  21. ONDANSETRON [Concomitant]
     Active Substance: ONDANSETRON
     Indication: NAUSEA
     Dosage: (4 MG,AS REQUIRED)
     Route: 042
     Dates: start: 20160303, end: 20160303
  22. PALONOSTERON [Concomitant]
     Indication: PROPHYLAXIS OF NAUSEA AND VOMITING
     Dosage: PRIOR TO CHEMOTHERAPY (0.25 MG)
     Route: 042
     Dates: start: 20160204, end: 20160720
  23. FENTANYL. [Concomitant]
     Active Substance: FENTANYL
     Indication: PAIN
     Dosage: 25?50 MCG (MICROGRAM(S)) (AS REQUIRED)
     Route: 042
     Dates: start: 20160303, end: 20160306
  24. OXYCODONE [Concomitant]
     Active Substance: OXYCODONE
     Indication: PAIN
     Dosage: (5 MG,AS REQUIRED)
     Route: 048
     Dates: start: 20160306
  25. MORPHINE [Concomitant]
     Active Substance: MORPHINE
     Indication: PAIN
     Dosage: (1 MG,AS REQUIRED)
     Route: 042
     Dates: start: 20160303, end: 20160303
  26. FLUCONAZOLE. [Concomitant]
     Active Substance: FLUCONAZOLE
     Indication: FUNGAL INFECTION
     Route: 048
     Dates: start: 20160309, end: 20160309
  27. THIOCTIC ACID [Concomitant]
     Active Substance: .ALPHA.-LIPOIC ACID
     Indication: NEUROPATHY PERIPHERAL
     Dosage: (600 MG,2 IN 1 D)
     Route: 048
     Dates: start: 20160518
  28. ACYCLOVIR. [Concomitant]
     Active Substance: ACYCLOVIR
     Indication: MENINGITIS HERPES
     Dosage: 1800 MG (600 MG,3 IN 1 D)
     Route: 042
     Dates: start: 20160304, end: 20160309
  29. EMEND [Concomitant]
     Active Substance: APREPITANT
     Indication: PROPHYLAXIS OF NAUSEA AND VOMITING
     Dosage: PRIOR TO CHEMOTHERAPY (150 MG)
     Dates: start: 20160608, end: 20160720
  30. NEUPOGEN [Concomitant]
     Active Substance: FILGRASTIM
     Indication: NEUTROPENIA
     Dosage: (480 MCG,1 IN 1 D)
     Route: 058
     Dates: start: 20160304, end: 20160304
  31. ACETAMINOPHEN. [Concomitant]
     Active Substance: ACETAMINOPHEN
     Indication: MENINGITIS HERPES
     Dosage: 325?650 MG (MILLIGRAM(S)) (AS REQUIRED)
     Route: 048
     Dates: start: 20160303, end: 20160305
  32. FLUCONAZOLE. [Concomitant]
     Active Substance: FLUCONAZOLE
     Route: 048
     Dates: start: 20160320, end: 20160321
  33. DEXAMETHASONE. [Concomitant]
     Active Substance: DEXAMETHASONE
     Indication: PROPHYLAXIS OF NAUSEA AND VOMITING
     Dosage: PRIOR TO CHEMOTHERAPY (10 MG)
     Route: 042
     Dates: start: 20160204, end: 20160518
  34. VANCOMYCIN [Concomitant]
     Active Substance: VANCOMYCIN
     Indication: PROPHYLAXIS
     Dosage: (1000 MG,1 IN 12 HR)
     Route: 042
     Dates: start: 20160302, end: 20160306
  35. FLOMAX [Concomitant]
     Active Substance: TAMSULOSIN HYDROCHLORIDE
     Indication: URINARY RETENTION
     Route: 048
     Dates: start: 20160309
  36. LOVENOX [Concomitant]
     Active Substance: ENOXAPARIN SODIUM
     Indication: PROPHYLAXIS
     Route: 058
     Dates: start: 20160302, end: 20160310
  37. VALTREX [Concomitant]
     Active Substance: VALACYCLOVIR HYDROCHLORIDE
     Indication: MENINGITIS HERPES
     Dosage: 2000 MG (1000 MG,2 IN 1 D)
     Route: 048
     Dates: start: 20160309
  38. NORCO [Concomitant]
     Active Substance: ACETAMINOPHEN\HYDROCODONE BITARTRATE
     Indication: PAIN
     Dosage: 5?325 MG (MILLIGRAM(S)) (AS REQUIRED)
     Route: 048
     Dates: start: 20160303, end: 20160304
  39. POTASSIUM CHLORIDE. [Concomitant]
     Active Substance: POTASSIUM CHLORIDE
     Indication: HYPOKALAEMIA
     Dosage: (20 MILLIEQUIVALENTS,AS REQUIRED)
     Route: 041
     Dates: start: 20160302, end: 20160307

REACTIONS (1)
  - Febrile neutropenia [Recovered/Resolved]

NARRATIVE: CASE EVENT DATE: 20160629
